FAERS Safety Report 17855125 (Version 5)
Quarter: 2021Q1

REPORT INFORMATION
  Report Type: Spontaneous
  Country: JP (occurrence: JP)
  Receive Date: 20200603
  Receipt Date: 20210204
  Transmission Date: 20210419
  Serious: Yes (Death, Other)
  Sender: FDA-Public Use
  Company Number: JP-ASTRAZENECA-2020SE69875

PATIENT
  Age: 77 Year
  Sex: Male

DRUGS (7)
  1. CEFEPIME [Concomitant]
     Active Substance: CEFEPIME HYDROCHLORIDE
  2. GANCICLOVIR. [Concomitant]
     Active Substance: GANCICLOVIR
  3. IMFINZI [Suspect]
     Active Substance: DURVALUMAB
     Indication: NON-SMALL CELL LUNG CANCER
     Route: 041
  4. VANCOMYCIN HYDROCHLORIDE. [Concomitant]
     Active Substance: VANCOMYCIN HYDROCHLORIDE
  5. SULFAMETHOXAZOLE/TRIMETHOPRIM [Concomitant]
     Active Substance: SULFAMETHOXAZOLE\TRIMETHOPRIM
  6. FOSFLUCONAZOLE [Concomitant]
     Active Substance: FOSFLUCONAZOLE
  7. VORICONAZOLE. [Concomitant]
     Active Substance: VORICONAZOLE

REACTIONS (7)
  - Hypoalbuminaemia [Unknown]
  - Immune-mediated hepatic disorder [Unknown]
  - Stomatitis [Unknown]
  - Cytomegalovirus viraemia [Unknown]
  - Aspergillus infection [Fatal]
  - Corynebacterium infection [Fatal]
  - Pneumonitis [Recovered/Resolved]
